FAERS Safety Report 7622290-4 (Version None)
Quarter: 2011Q3

REPORT INFORMATION
  Report Type: 
  Country: None (occurrence: None)
  Receive Date: 20110720
  Receipt Date: 20110708
  Transmission Date: 20111222
  Serious: Yes (Death, Hospitalization)
  Sender: FDA-Public Use
  Company Number: FR-BAYER-2011-059137

PATIENT
  Age: 86 Year
  Sex: Male

DRUGS (7)
  1. FUROSEMIDE [Concomitant]
     Dosage: DAILY DOSE 1 DF
     Route: 048
  2. CIPROFLOXACIN [Suspect]
     Dosage: UNK
     Route: 042
     Dates: start: 20101227
  3. ALLOPURINOL [Concomitant]
     Dosage: 1 DF, UNK
     Route: 048
  4. NIPENT [Suspect]
     Dosage: 1 DF, Q2WK
     Route: 042
     Dates: start: 20101217
  5. CLAFORAN [Suspect]
     Dosage: UNK
     Route: 042
     Dates: start: 20101227
  6. PREVISCAN [Concomitant]
     Dosage: DAILY DOSE .75 DF
     Route: 048
     Dates: end: 20101227
  7. ACETAMINOPHEN [Concomitant]
     Route: 048

REACTIONS (2)
  - RENAL FAILURE ACUTE [None]
  - CONFUSIONAL STATE [None]
